FAERS Safety Report 7237488-7 (Version None)
Quarter: 2011Q1

REPORT INFORMATION
  Report Type: 
  Country: None (occurrence: None)
  Receive Date: 20110113
  Receipt Date: 20110104
  Transmission Date: 20110831
  Serious: Yes (Hospitalization)
  Sender: FDA-Public Use
  Company Number: 1000010679

PATIENT
  Age: 63 Year
  Sex: Female
  Weight: 107.9 kg

DRUGS (10)
  1. CELEBREX (CELECOXIB) (200 MILLIGRAM, TABLETS) (CELECOXIB) [Concomitant]
  2. IBUPROFEN (IBUPROFEN) (TABLETS) (IBUPROFEN) [Concomitant]
  3. LUNESTA (ESZOPICLONE) (ESZOPICLONE) [Concomitant]
  4. VALIUM [Concomitant]
  5. SYNTHROID (LEVOTHYROXINE SODIUM) (137 MICROGRAM, TABLETS) (LEVOTHYROXI [Concomitant]
  6. PREVACID (LANSOPRAZOLE) (30 MILLIGRAM, TABLETS) (LANSOPRAZOLE) [Concomitant]
  7. AMBIEN [Concomitant]
  8. SAVELLA [Suspect]
     Indication: FIBROMYALGIA
     Dosage: 100 MG (50 MG, 2 IN 1 D), ORAL
     Route: 048
     Dates: start: 20091110, end: 20091116
  9. SAVELLA [Suspect]
     Indication: FIBROMYALGIA
     Dosage: 12.5 MG (12.5 MG, 1 IN 1 D), ORAL
     Route: 048
     Dates: start: 20091103, end: 20091103
  10. LIDODERM (LIDOCAINE) (LIDOCAINE) [Concomitant]

REACTIONS (9)
  - NAUSEA [None]
  - INSOMNIA [None]
  - PARAESTHESIA [None]
  - HEADACHE [None]
  - HYPERHIDROSIS [None]
  - PLEURITIC PAIN [None]
  - PULMONARY EMBOLISM [None]
  - CHILLS [None]
  - PAIN [None]
